FAERS Safety Report 9031384 (Version 1)
Quarter: 2013Q1

REPORT INFORMATION
  Report Type: Spontaneous
  Country: BR (occurrence: BR)
  Receive Date: 20130124
  Receipt Date: 20130124
  Transmission Date: 20140127
  Serious: Yes (Other)
  Sender: FDA-Public Use
  Company Number: BR-AMGEN-BRASP2013004883

PATIENT
  Age: 50 Year
  Sex: Female
  Weight: 66 kg

DRUGS (2)
  1. ENBREL [Suspect]
     Indication: RHEUMATOID ARTHRITIS
     Dosage: 25 MG, EVERY 10 DAYS
     Route: 058
     Dates: start: 200711
  2. SERTRALINE [Concomitant]
     Indication: STRESS
     Dosage: UNK
     Dates: start: 2006

REACTIONS (5)
  - Breast disorder [Unknown]
  - Osteoarthritis [Unknown]
  - Neck pain [Unknown]
  - Pneumonia [Unknown]
  - Drug ineffective [Unknown]
